FAERS Safety Report 8783293 (Version 1)
Quarter: 2012Q4

REPORT INFORMATION
  Report Type: 
  Country: US (occurrence: US)
  Receive Date: 20120913
  Receipt Date: 20120913
  Transmission Date: 20130627
  Serious: No
  Sender: FDA-Public Use
  Company Number: US-VERTEX PHARMACEUTICAL INC.-AE-2012-008630

PATIENT

DRUGS (7)
  1. VX-950 [Suspect]
     Indication: HEPATITIS C
     Dosage: 750 mg, tid
     Route: 048
     Dates: start: 20120504
  2. PEGASYS [Concomitant]
     Indication: HEPATITIS C
     Dosage: 180 ?g, UNK
     Route: 058
  3. RIBAVIRIN [Concomitant]
     Indication: HEPATITIS C
     Dosage: 200 mg, UNK
  4. LOPRESSOR [Concomitant]
     Dosage: 50 mg, UNK
  5. LISINOPRIL [Concomitant]
     Dosage: 2.5 mg, UNK
  6. IBUPROFEN [Concomitant]
     Dosage: 40 UNK, UNK
  7. MOTRIN IB [Concomitant]
     Dosage: 200 mg, UNK

REACTIONS (9)
  - Irritability [Unknown]
  - Neutropenia [Unknown]
  - Blood potassium decreased [Unknown]
  - Fatigue [Unknown]
  - Rash [Unknown]
  - Anorectal discomfort [Unknown]
  - Anal pruritus [Unknown]
  - Pain [Unknown]
  - Hyperhidrosis [Unknown]
